FAERS Safety Report 13366168 (Version 2)
Quarter: 2017Q3

REPORT INFORMATION
  Report Type: Spontaneous
  Country: CA (occurrence: US)
  Receive Date: 20170323
  Receipt Date: 20170721
  Transmission Date: 20171127
  Serious: Yes (Other)
  Sender: FDA-Public Use
  Company Number: US-CELGENEUS-USA-2017035759

PATIENT
  Age: 67 Year
  Sex: Male

DRUGS (2)
  1. VIDAZA [Suspect]
     Active Substance: AZACITIDINE
     Indication: MYELODYSPLASTIC SYNDROME
     Route: 058
  2. VIDAZA [Suspect]
     Active Substance: AZACITIDINE
     Route: 041

REACTIONS (1)
  - Pyoderma gangrenosum [Recovered/Resolved]
